FAERS Safety Report 7065076-4 (Version None)
Quarter: 2010Q4

REPORT INFORMATION
  Report Type: 
  Country: None (occurrence: None)
  Receive Date: 20101027
  Receipt Date: 20101022
  Transmission Date: 20110411
  Serious: Yes (Death, Hospitalization)
  Sender: FDA-Public Use
  Company Number: DE-WYE-H14901910

PATIENT
  Sex: Male
  Weight: 68 kg

DRUGS (20)
  1. RAPAMUNE [Suspect]
     Indication: PROPHYLAXIS AGAINST TRANSPLANT REJECTION
     Route: 048
     Dates: start: 20080930, end: 20100212
  2. RAPAMUNE [Suspect]
     Route: 048
     Dates: start: 20100507, end: 20100512
  3. RAPAMUNE [Suspect]
     Route: 048
     Dates: start: 20100512, end: 20100519
  4. RAPAMUNE [Suspect]
     Route: 048
     Dates: start: 20100519, end: 20100907
  5. RAPAMUNE [Suspect]
     Route: 048
     Dates: start: 20100907, end: 20100926
  6. CELL CEPT [Concomitant]
     Indication: PROPHYLAXIS AGAINST TRANSPLANT REJECTION
     Route: 048
     Dates: start: 20080901, end: 20100926
  7. CALCILAC [Concomitant]
     Indication: OSTEOPOROSIS
     Route: 048
     Dates: start: 20080901, end: 20100926
  8. PANTOPRAZOLE SODIUM [Concomitant]
     Indication: PROPHYLAXIS
     Dates: start: 20080901, end: 20100926
  9. METOPROLOL SUCCINATE [Concomitant]
     Indication: HYPERTENSION
     Route: 048
     Dates: start: 20091001, end: 20100926
  10. DELIX [Concomitant]
     Indication: HYPERTENSION
     Route: 048
     Dates: start: 20091001, end: 20100926
  11. URSODEOXYCHOLATE SODIUM [Concomitant]
     Indication: PROPHYLAXIS
     Route: 048
     Dates: start: 20080901, end: 20100926
  12. ASPIRIN [Concomitant]
     Indication: PROPHYLAXIS
     Route: 048
     Dates: start: 20080901, end: 20100926
  13. INSULIN [Concomitant]
     Indication: DIABETES MELLITUS
     Dosage: DOSE DEPENDENT ON BLOOD SUGAR LEVEL
     Route: 058
     Dates: start: 20100101, end: 20100926
  14. LOCOL [Concomitant]
     Indication: BLOOD CHOLESTEROL INCREASED
     Route: 048
     Dates: start: 20100512, end: 20100926
  15. LOCOL [Concomitant]
     Route: 048
     Dates: start: 20090610, end: 20090916
  16. FRAXIPARIN [Concomitant]
     Indication: THROMBOSIS PROPHYLAXIS
     Route: 058
     Dates: start: 20100727, end: 20100926
  17. ALDACTONE [Concomitant]
     Indication: ASCITES
     Route: 048
     Dates: start: 20100713, end: 20100926
  18. FURORESE [Concomitant]
     Indication: ASCITES
     Route: 048
     Dates: start: 20100713, end: 20100926
  19. URBASON [Concomitant]
     Indication: PROPHYLAXIS AGAINST TRANSPLANT REJECTION
     Route: 048
     Dates: start: 20100629, end: 20100926
  20. ADVAGRAF [Concomitant]
     Indication: PROPHYLAXIS AGAINST TRANSPLANT REJECTION
     Route: 048
     Dates: start: 20100212, end: 20100507

REACTIONS (2)
  - HEPATIC FAILURE [None]
  - HEPATIC STEATOSIS [None]
